FAERS Safety Report 9840182 (Version 1)
Quarter: 2014Q1

REPORT INFORMATION
  Report Type: Spontaneous
  Country: None (occurrence: DK)
  Receive Date: 20140124
  Receipt Date: 20140124
  Transmission Date: 20141002
  Serious: Yes (Death)
  Sender: FDA-Public Use
  Company Number: DK-ACCORD-021496

PATIENT
  Age: 27 Year
  Sex: Male

DRUGS (1)
  1. QUETIAPINE [Suspect]
     Indication: ANXIETY DISORDER

REACTIONS (4)
  - Multi-organ failure [Fatal]
  - Pancreatitis acute [Fatal]
  - Hypertriglyceridaemia [Fatal]
  - Diabetic ketoacidosis [Fatal]
